FAERS Safety Report 24590005 (Version 1)
Quarter: 2024Q4

REPORT INFORMATION
  Report Type: Spontaneous
  Country: US (occurrence: None)
  Receive Date: 20241106
  Receipt Date: 20241106
  Transmission Date: 20250115
  Serious: Yes (Hospitalization)
  Sender: Public
  Company Number: None

PATIENT
  Age: 37 Year
  Sex: Female
  Weight: 100.8 kg

DRUGS (1)
  1. QELBREE [Suspect]
     Active Substance: VILOXAZINE HYDROCHLORIDE

REACTIONS (6)
  - Nausea [None]
  - Vomiting [None]
  - Migraine [None]
  - Seizure [None]
  - Tremor [None]
  - Paralysis [None]

NARRATIVE: CASE EVENT DATE: 20241026
